FAERS Safety Report 10017370 (Version 1)
Quarter: 2014Q1

REPORT INFORMATION
  Report Type: Spontaneous
  Country: IT (occurrence: IT)
  Receive Date: 20140318
  Receipt Date: 20140318
  Transmission Date: 20141002
  Serious: Yes (Hospitalization)
  Sender: FDA-Public Use
  Company Number: IT-JNJFOC-20140306782

PATIENT
  Age: 21 Year
  Sex: Male

DRUGS (1)
  1. TOPIRAMATE [Suspect]
     Indication: PRODUCT USED FOR UNKNOWN INDICATION
     Route: 048
     Dates: start: 20130715, end: 20130715

REACTIONS (4)
  - Suicide attempt [Unknown]
  - Sopor [Recovering/Resolving]
  - Intentional overdose [Unknown]
  - Drug abuse [Unknown]
